FAERS Safety Report 18171369 (Version 2)
Quarter: 2020Q3

REPORT INFORMATION
  Report Type: Report from Study
  Country: GB (occurrence: GB)
  Receive Date: 20200819
  Receipt Date: 20200901
  Transmission Date: 20201103
  Serious: Yes (Other)
  Sender: FDA-Public Use
  Company Number: GB-SAMSUNG BIOEPIS-SB-2020-26075

PATIENT
  Age: 72 Year
  Sex: Male

DRUGS (1)
  1. IMRALDI [Suspect]
     Active Substance: ADALIMUMAB
     Indication: PSORIATIC ARTHROPATHY
     Route: 058
     Dates: start: 20191210

REACTIONS (7)
  - Immunosuppression [Recovering/Resolving]
  - Type 2 diabetes mellitus [Unknown]
  - Urinary tract infection [Recovering/Resolving]
  - Body height decreased [Recovering/Resolving]
  - Muscular weakness [Recovering/Resolving]
  - Cystitis [Recovering/Resolving]
  - Pneumonia [Recovering/Resolving]
